FAERS Safety Report 10249130 (Version 1)
Quarter: 2014Q2

REPORT INFORMATION
  Report Type: Spontaneous
  Country: IT (occurrence: IT)
  Receive Date: 20140620
  Receipt Date: 20140620
  Transmission Date: 20141212
  Serious: Yes (Hospitalization)
  Sender: FDA-Public Use
  Company Number: IT-SA-2014SA078422

PATIENT
  Age: 77 Year
  Sex: Male

DRUGS (4)
  1. MYOZYME [Suspect]
     Indication: GLYCOGEN STORAGE DISEASE TYPE II
     Route: 042
     Dates: start: 2010
  2. DILTIAZEM [Concomitant]
     Indication: HYPERTENSION
  3. LOSARTAN [Concomitant]
     Indication: HYPERTENSION
  4. FUROSEMIDE [Concomitant]
     Indication: OEDEMA PERIPHERAL

REACTIONS (4)
  - Acute myocardial infarction [Unknown]
  - Acute coronary syndrome [Unknown]
  - Chest pain [Recovered/Resolved]
  - Troponin increased [Unknown]
